FAERS Safety Report 10044798 (Version 2)
Quarter: 2014Q2

REPORT INFORMATION
  Report Type: Spontaneous
  Country: US (occurrence: US)
  Receive Date: 20140328
  Receipt Date: 20140423
  Transmission Date: 20141212
  Serious: No
  Sender: FDA-Public Use
  Company Number: US-009507513-1403USA008467

PATIENT
  Age: 69 Year
  Sex: Female
  Weight: 84.35 kg

DRUGS (8)
  1. OXYTROL FOR WOMEN [Suspect]
     Indication: BLADDER DISORDER
     Dosage: 1 DF, Q4D
     Route: 062
     Dates: start: 20140212, end: 20140223
  2. OXYTROL FOR WOMEN [Suspect]
     Indication: MICTURITION URGENCY
  3. METFORMIN [Concomitant]
     Indication: DIABETES MELLITUS
     Dosage: UNK, UNKNOWN
  4. GLIMEPIRIDE [Concomitant]
     Indication: DIABETES MELLITUS
     Dosage: UNK, UNKNOWN
  5. CARVEDILOL [Concomitant]
     Indication: HYPERTENSION
     Dosage: 2 DF, QD
  6. HYDROCHLOROTHIAZIDE (+) LISINOPRIL [Concomitant]
     Indication: HYPERTENSION
     Dosage: 1 DF, QD
  7. ZONEGRAN [Concomitant]
     Indication: CONVULSION
     Dosage: 200 MG, QD
  8. ZETIA [Concomitant]
     Indication: BLOOD CHOLESTEROL INCREASED
     Dosage: 10 MG, QD

REACTIONS (2)
  - Off label use [Unknown]
  - Drug ineffective [Unknown]
